FAERS Safety Report 6775327-9 (Version None)
Quarter: 2010Q2

REPORT INFORMATION
  Report Type: 
  Country: None (occurrence: None)
  Receive Date: 20100615
  Receipt Date: 20100615
  Transmission Date: 20101027
  Serious: Yes (Other)
  Sender: FDA-Public Use
  Company Number: None

PATIENT
  Age: 57 Year
  Sex: Female
  Weight: 68.0396 kg

DRUGS (1)
  1. CEFDINIR [Suspect]
     Indication: SINUSITIS
     Dates: start: 20091102, end: 20091106

REACTIONS (6)
  - ALOPECIA [None]
  - COLITIS [None]
  - COW'S MILK INTOLERANCE [None]
  - DIARRHOEA [None]
  - FLATULENCE [None]
  - FUNGAL INFECTION [None]
